FAERS Safety Report 6939955-X (Version None)
Quarter: 2010Q3

REPORT INFORMATION
  Report Type: 
  Country: None (occurrence: None)
  Receive Date: 20100825
  Receipt Date: 20100817
  Transmission Date: 20110219
  Serious: Yes (Hospitalization)
  Sender: FDA-Public Use
  Company Number: FR-PFIZER INC-2010098912

PATIENT
  Age: 64 Year
  Sex: Female

DRUGS (7)
  1. TAHOR [Suspect]
     Dosage: UNK
     Route: 048
     Dates: end: 20100423
  2. CRESTOR [Suspect]
     Dosage: UNK
     Route: 048
     Dates: start: 20100601, end: 20100601
  3. EFFIENT [Concomitant]
     Dosage: UNK
  4. KARDEGIC [Concomitant]
     Dosage: UNK
  5. RANITIDINE HCL [Concomitant]
     Dosage: UNK
  6. BISOPROLOL FUMARATE [Concomitant]
     Dosage: UNK
  7. MICARDIS [Concomitant]
     Dosage: UNK

REACTIONS (1)
  - CYTOLYTIC HEPATITIS [None]
